FAERS Safety Report 6492396-4 (Version None)
Quarter: 2009Q4

REPORT INFORMATION
  Report Type: 
  Country: None (occurrence: None)
  Receive Date: 20091214
  Receipt Date: 20091204
  Transmission Date: 20100525
  Serious: Yes (Death, Hospitalization)
  Sender: FDA-Public Use
  Company Number: IT-ROCHE-666129

PATIENT
  Sex: Female
  Weight: 78 kg

DRUGS (5)
  1. XELODA [Suspect]
     Indication: BREAST CANCER
     Route: 048
     Dates: start: 20091007, end: 20091021
  2. TYVERB [Suspect]
     Indication: BREAST CANCER
     Route: 048
     Dates: start: 20091007, end: 20091021
  3. HERCEPTIN [Concomitant]
  4. TAXOL [Concomitant]
     Dosage: DRUG: PACLITAXEL/TAXOLO.
  5. ZOMETA [Concomitant]

REACTIONS (3)
  - DIARRHOEA [None]
  - NEUTROPENIA [None]
  - STOMATITIS [None]
